FAERS Safety Report 12870562 (Version 1)
Quarter: 2016Q4

REPORT INFORMATION
  Report Type: Spontaneous
  Country: US (occurrence: US)
  Receive Date: 20161021
  Receipt Date: 20161021
  Transmission Date: 20170207
  Serious: No
  Sender: FDA-Public Use
  Company Number: None

PATIENT
  Sex: Male

DRUGS (1)
  1. TAMSULOSIN CITRON PHARMA [Suspect]
     Active Substance: TAMSULOSIN

REACTIONS (12)
  - Walking aid user [None]
  - Balance disorder [None]
  - Hypersomnia [None]
  - Asthenia [None]
  - Tension headache [None]
  - Gait disturbance [None]
  - Fatigue [None]
  - Fall [None]
  - Somnolence [None]
  - Laceration [None]
  - Therapy non-responder [None]
  - Urine output decreased [None]
